FAERS Safety Report 23842263 (Version 1)
Quarter: 2024Q2

REPORT INFORMATION
  Report Type: Spontaneous
  Country: US (occurrence: None)
  Receive Date: 20240509
  Receipt Date: 20240509
  Transmission Date: 20240715
  Serious: Yes (Other)
  Sender: FDA-Public Use
  Company Number: None

PATIENT
  Age: 65 Year
  Sex: Female
  Weight: 63 kg

DRUGS (6)
  1. EMGALITY [Suspect]
     Active Substance: GALCANEZUMAB-GNLM
     Indication: Migraine
     Dates: start: 20230209, end: 20240430
  2. EXEMESTANE [Concomitant]
     Active Substance: EXEMESTANE
  3. VITAMINS [Concomitant]
     Active Substance: VITAMINS
  4. CALCIUM [Concomitant]
     Active Substance: CALCIUM
  5. VITAMIN D NOS [Concomitant]
     Active Substance: VITAMIN D NOS
  6. BIOTIN [Concomitant]
     Active Substance: BIOTIN

REACTIONS (13)
  - Vertigo [None]
  - Feeling abnormal [None]
  - Dizziness [None]
  - Middle insomnia [None]
  - Flushing [None]
  - Restless legs syndrome [None]
  - Paraesthesia [None]
  - Feeling of body temperature change [None]
  - Thinking abnormal [None]
  - Panic attack [None]
  - Brain fog [None]
  - Memory impairment [None]
  - Therapy cessation [None]

NARRATIVE: CASE EVENT DATE: 20240417
